FAERS Safety Report 7910386-9 (Version None)
Quarter: 2011Q4

REPORT INFORMATION
  Report Type: 
  Country: None (occurrence: None)
  Receive Date: 20111111
  Receipt Date: 20111101
  Transmission Date: 20120403
  Serious: Yes (Life-Threatening, Hospitalization, Other)
  Sender: FDA-Public Use
  Company Number: NL-ROCHE-596597

PATIENT
  Sex: Female
  Weight: 65 kg

DRUGS (3)
  1. LARIAM [Suspect]
     Route: 048
     Dates: start: 20080803, end: 20080921
  2. LARIAM [Suspect]
     Indication: MALARIA PROPHYLAXIS
     Route: 048
     Dates: start: 20080803, end: 20080923
  3. LARIAM [Suspect]
     Route: 048

REACTIONS (8)
  - ANXIETY [None]
  - SLEEP DISORDER [None]
  - HYPERAESTHESIA [None]
  - PSYCHOTIC DISORDER [None]
  - ROAD TRAFFIC ACCIDENT [None]
  - DIZZINESS [None]
  - GASTROINTESTINAL BACTERIAL INFECTION [None]
  - RASH [None]
